FAERS Safety Report 14271294 (Version 13)
Quarter: 2019Q1

REPORT INFORMATION
  Report Type: Spontaneous
  Country: PT (occurrence: PT)
  Receive Date: 20171211
  Receipt Date: 20190305
  Transmission Date: 20190417
  Serious: Yes (Disabling, Other)
  Sender: FDA-Public Use
  Company Number: PT-MYLANLABS-2017M1077163

PATIENT
  Age: 79 Year
  Sex: Female
  Weight: 68 kg

DRUGS (29)
  1. LISALGIL [Suspect]
     Active Substance: METAMIZOLE SODIUM
     Indication: OSTEOPOROSIS PROPHYLAXIS
  2. METAMIZOLE MAGNESIUM [Suspect]
     Active Substance: METAMIZOLE MAGNESIUM
     Indication: OSTEOPOROSIS PROPHYLAXIS
  3. TRAMADOL. [Suspect]
     Active Substance: TRAMADOL
     Dosage: 1 DF, QD
     Route: 048
     Dates: start: 20170817, end: 20170824
  4. PARACETAMOL [Suspect]
     Active Substance: ACETAMINOPHEN
     Indication: OSTEOARTHRITIS
     Dosage: 1 GRAM, PRN
     Route: 048
     Dates: start: 20170817, end: 20170823
  5. LISALGIL [Suspect]
     Active Substance: METAMIZOLE SODIUM
     Indication: OSTEOARTHRITIS
     Dosage: 1 DF, UNK
     Route: 042
     Dates: start: 20170810, end: 20170815
  6. DIAMICRON LM [Concomitant]
     Active Substance: GLICLAZIDE
     Indication: GLUCOSE TOLERANCE IMPAIRED
     Dosage: 30 MG, QD
     Route: 048
     Dates: start: 2015
  7. TENORMINE [Concomitant]
     Active Substance: ATENOLOL
     Indication: HYPERTENSION
     Dosage: 50 MG, QD
     Route: 048
     Dates: start: 1991
  8. OMEPRAZOLE. [Concomitant]
     Active Substance: OMEPRAZOLE
     Indication: PROPHYLAXIS AGAINST GASTROINTESTINAL ULCER
     Dosage: 20 MG, QD
     Route: 048
     Dates: start: 20080101
  9. PARACETAMOL [Suspect]
     Active Substance: ACETAMINOPHEN
     Indication: OSTEOARTHRITIS
     Dosage: 1 DOSAGE FORM, QD
     Route: 042
     Dates: start: 20170810, end: 20170817
  10. CARTIA [Concomitant]
     Dosage: 100 MG, Q2D(100 MG EM DIASALTERNADOS)
     Route: 048
     Dates: start: 1992
  11. ATENOLOL. [Concomitant]
     Active Substance: ATENOLOL
     Dosage: UNK
     Route: 065
     Dates: start: 1991
  12. TRAMADOL. [Suspect]
     Active Substance: TRAMADOL
     Indication: OSTEOARTHRITIS
     Dosage: 1 DOSAGE FORM, QD
     Route: 042
     Dates: start: 20170810, end: 20170817
  13. PARACETAMOL SANDOZ [Suspect]
     Active Substance: ACETAMINOPHEN
     Indication: OSTEOARTHRITIS
     Dosage: 1 G, QD
     Route: 048
     Dates: start: 20170824, end: 20170920
  14. NOLOTIL (DEXTROPROPOXYPHENE\METAMIZOLE MAGNESIUM) [Suspect]
     Active Substance: METAMIZOLE\PROPOXYPHENE
     Indication: OSTEOARTHRITIS
     Dosage: 1 DOSAGE FORM, QD
     Route: 042
     Dates: start: 20170810, end: 20170816
  15. PARACETAMOL [Suspect]
     Active Substance: ACETAMINOPHEN
     Dosage: 1 G, QD
     Route: 048
     Dates: start: 20170824, end: 20170920
  16. TRIDURAL [Suspect]
     Active Substance: TRAMADOL HYDROCHLORIDE
     Indication: OSTEOARTHRITIS
     Dosage: 100 MG, BID
     Route: 048
     Dates: start: 20170824, end: 20171003
  17. CARTIA [Concomitant]
     Dosage: 100 MG, QD
     Route: 048
  18. HYTACAND [Concomitant]
     Active Substance: CANDESARTAN CILEXETIL\HYDROCHLOROTHIAZIDE
     Dosage: 1 DOSAGE FORM, QD
     Route: 048
     Dates: start: 1991
  19. OMEPRAZOLE. [Concomitant]
     Active Substance: OMEPRAZOLE
     Dosage: 20 MG, QD
     Dates: start: 2008
  20. TRAMADOL. [Suspect]
     Active Substance: TRAMADOL
     Indication: OSTEOARTHRITIS
     Dosage: 1 DF, QD
     Route: 048
     Dates: start: 201708, end: 201708
  21. TRAMADOL. [Suspect]
     Active Substance: TRAMADOL
     Dosage: 200 MG, QD
     Route: 048
     Dates: start: 20170824, end: 20171003
  22. HYTACAND [Concomitant]
     Active Substance: CANDESARTAN CILEXETIL\HYDROCHLOROTHIAZIDE
     Indication: HYPERTENSION
     Dosage: 16 MG, QD
     Route: 048
     Dates: start: 19910101
  23. TRIDURAL [Suspect]
     Active Substance: TRAMADOL HYDROCHLORIDE
     Dosage: 100 MG, BID
     Route: 048
     Dates: start: 20170810
  24. NOLOTIL (DEXTROPROPOXYPHENE\METAMIZOLE MAGNESIUM) [Suspect]
     Active Substance: METAMIZOLE\PROPOXYPHENE
     Indication: OSTEOPOROSIS PROPHYLAXIS
  25. METAMIZOLE MAGNESIUM [Suspect]
     Active Substance: METAMIZOLE MAGNESIUM
     Indication: OSTEOARTHRITIS
     Dosage: UNK
  26. AMLODIPINE [Concomitant]
     Active Substance: AMLODIPINE BESYLATE
     Indication: HYPERTENSION
     Dosage: 5 MG, QD
     Route: 048
     Dates: start: 2012
  27. CARTIA [Concomitant]
     Indication: PROPHYLAXIS
     Dosage: 200 MG, QD
     Route: 048
     Dates: start: 19920101
  28. DIAMICRON LM [Concomitant]
     Active Substance: GLICLAZIDE
     Indication: BLOOD GLUCOSE INCREASED
  29. FOSAVANCE [Concomitant]
     Active Substance: ALENDRONATE SODIUM\CHOLECALCIFEROL
     Indication: OSTEOPOROSIS PROPHYLAXIS
     Dosage: 1 DF, QW(1 COMPRIMIDO/SEMANA)
     Route: 048

REACTIONS (12)
  - Abdominal distension [Recovered/Resolved]
  - Tremor [Recovered/Resolved]
  - Cachexia [Recovered/Resolved]
  - Constipation [Recovered/Resolved]
  - Nausea [Recovered/Resolved]
  - Decreased appetite [Recovered/Resolved]
  - Diarrhoea [Recovered/Resolved]
  - Flatulence [Recovered/Resolved]
  - Hallucination, visual [Recovered/Resolved]
  - Vomiting [Recovered/Resolved]
  - Micturition frequency decreased [Recovered/Resolved]
  - Heart rate increased [Recovered/Resolved]

NARRATIVE: CASE EVENT DATE: 201708
